FAERS Safety Report 9691907 (Version 2)
Quarter: 2013Q4

REPORT INFORMATION
  Report Type: Report from Study
  Country: US (occurrence: US)
  Receive Date: 20131117
  Receipt Date: 20131118
  Transmission Date: 20140711
  Serious: Yes (Life-Threatening, Hospitalization)
  Sender: FDA-Public Use
  Company Number: US-MERCK-1311USA005748

PATIENT
  Age: 9 Month
  Sex: Male
  Weight: 10.53 kg

DRUGS (6)
  1. VORINOSTAT [Suspect]
     Indication: MEDULLOBLASTOMA
     Dosage: 230 MG/M2/DOSE PO ON DAYS 1-4 (CYCLE 1)(TOTAL DOSE ADMINISTERED 440MG)
     Route: 048
     Dates: start: 20131021, end: 20131024
  2. ISOTRETINOIN [Suspect]
     Indication: MEDULLOBLASTOMA
     Dosage: 80 MG/M2/DOSE PO BID ON DAYS 1-4, CYCLE 1(TOTAL DOSE ADMINISTERED 160MG)
     Route: 048
     Dates: start: 20131021, end: 20131024
  3. VINCRISTINE [Suspect]
     Indication: MEDULLOBLASTOMA
     Dosage: 0.05 MG/KG/DAY IVP ON DAYS 4, 11 AND 18
     Route: 042
     Dates: start: 20131024
  4. CISPLATIN [Suspect]
     Indication: MEDULLOBLASTOMA
     Dosage: 3.5 MG/KG/DAY IV OVER 6 HRS ON DAY 4, CYCLE 1(TOTAL DOSE ADMINISTERED REPORTED AS 39.6MG)
     Route: 042
     Dates: start: 20131024, end: 20131024
  5. CYCLOPHOSPHAMIDE [Suspect]
     Indication: MEDULLOBLASTOMA
     Dosage: 60 MG/KG/DAY IV OVER 1 HR ON DAYS 5 AND 6, CYCLE 1(TOTAL DOSE ADMINSITERED 1356MG)
     Route: 042
     Dates: start: 20131025, end: 20131026
  6. ETOPOSIDE [Suspect]
     Indication: MEDULLOBLASTOMA
     Dosage: 2.5 MG/KG/DAY IV OVER 1 HR ON DAYS 4, 5 AND 6, CYCLE 1(TOAL DOSE ADMINISTERED 84MG)
     Route: 042
     Dates: start: 20131024, end: 20131026

REACTIONS (3)
  - Neutrophil count decreased [Recovered/Resolved]
  - White blood cell count decreased [Recovered/Resolved]
  - Device related infection [Unknown]
